FAERS Safety Report 25857527 (Version 4)
Quarter: 2025Q4

REPORT INFORMATION
  Report Type: Spontaneous
  Country: JP (occurrence: JP)
  Receive Date: 20250929
  Receipt Date: 20251231
  Transmission Date: 20260117
  Serious: Yes (Hospitalization)
  Sender: JOHNSON AND JOHNSON
  Company Number: JP-JNJFOC-20250942533

PATIENT
  Age: 70 Year
  Sex: Male

DRUGS (6)
  1. OPSUMIT [Suspect]
     Active Substance: MACITENTAN
     Indication: Pulmonary arterial hypertension
     Route: 048
     Dates: start: 20200229
  2. UPTRAVI [Suspect]
     Active Substance: SELEXIPAG
     Indication: Pulmonary arterial hypertension
     Dosage: PERORAL MEDICINE
     Route: 048
     Dates: start: 20200413
  3. UPTRAVI [Suspect]
     Active Substance: SELEXIPAG
     Dosage: PERORAL MEDICINE
     Route: 048
     Dates: start: 20200413
  4. ADCIRCA [Concomitant]
     Active Substance: TADALAFIL
     Indication: Pulmonary arterial hypertension
     Dosage: PERORAL MEDICINE
     Route: 048
     Dates: start: 20200229
  5. ADCIRCA [Concomitant]
     Active Substance: TADALAFIL
     Dosage: PERORAL MEDICINE
     Route: 048
     Dates: start: 20200229
  6. PLATELETS [Concomitant]
     Active Substance: HUMAN PLATELET, ALLOGENIC
     Indication: Product used for unknown indication

REACTIONS (3)
  - Platelet count decreased [Recovering/Resolving]
  - Prostate cancer [Not Recovered/Not Resolved]
  - Metastases to bone [Unknown]

NARRATIVE: CASE EVENT DATE: 20250903
